FAERS Safety Report 7407179-8 (Version None)
Quarter: 2011Q2

REPORT INFORMATION
  Report Type: 
  Country: None (occurrence: None)
  Receive Date: 20110411
  Receipt Date: 20110405
  Transmission Date: 20111010
  Serious: Yes (Other)
  Sender: FDA-Public Use
  Company Number: US-B.I. PHARMACEUTICALS,INC./RIDGEFIELD-2011-BP-10053BP

PATIENT
  Sex: Male

DRUGS (2)
  1. ALBUTEROL [Concomitant]
     Indication: ASTHMA
  2. COMBIVENT [Suspect]
     Indication: ASTHMA
     Route: 055

REACTIONS (9)
  - PAIN IN EXTREMITY [None]
  - HAEMOGLOBIN DECREASED [None]
  - BLOOD COUNT ABNORMAL [None]
  - CHRONIC LYMPHOCYTIC LEUKAEMIA [None]
  - LIVER DISORDER [None]
  - MONOPARESIS [None]
  - RENAL DISORDER [None]
  - SPLEEN DISORDER [None]
  - LYMPHADENOPATHY [None]
